FAERS Safety Report 17011931 (Version 2)
Quarter: 2019Q4

REPORT INFORMATION
  Report Type: Spontaneous
  Country: FR (occurrence: FR)
  Receive Date: 20191108
  Receipt Date: 20191202
  Transmission Date: 20200122
  Serious: Yes (Death)
  Sender: FDA-Public Use
  Company Number: FR-NAPPMUNDI-GBR-2019-0072264

PATIENT
  Age: 53 Year
  Sex: Male
  Weight: 68.8 kg

DRUGS (7)
  1. ACIDE FOLIQUE [Concomitant]
     Active Substance: FOLIC ACID
  2. PREDNISOLONE. [Concomitant]
     Active Substance: PREDNISOLONE
  3. OXYNORM [Suspect]
     Active Substance: OXYCODONE HYDROCHLORIDE
     Indication: CANCER PAIN
     Dosage: UNK
     Route: 041
     Dates: start: 20190830, end: 20190830
  4. MOVICOL [Concomitant]
     Active Substance: POLYETHYLENE GLYCOL 3350\POTASSIUM CHLORIDE\SODIUM BICARBONATE\SODIUM CHLORIDE
  5. TERBUTALINE SULFATE. [Concomitant]
     Active Substance: TERBUTALINE SULFATE
  6. PANTOPRAZOLE [Concomitant]
     Active Substance: PANTOPRAZOLE
  7. IPRATROPIUM BROMIDE. [Concomitant]
     Active Substance: IPRATROPIUM BROMIDE

REACTIONS (3)
  - Bradypnoea [Fatal]
  - Device programming error [Fatal]
  - Coma [Fatal]

NARRATIVE: CASE EVENT DATE: 20190830
